FAERS Safety Report 5368086-8 (Version None)
Quarter: 2007Q2

REPORT INFORMATION
  Report Type: 
  Country: None (occurrence: None)
  Receive Date: 20070622
  Receipt Date: 20070618
  Transmission Date: 20071010
  Serious: Yes (Life-Threatening, Hospitalization)
  Sender: FDA-Public Use
  Company Number: US-MERCK-0705USA04546

PATIENT
  Age: 86 Year
  Sex: Male
  Weight: 51 kg

DRUGS (11)
  1. VYTORIN [Suspect]
     Indication: HYPERCHOLESTEROLAEMIA
     Route: 048
     Dates: start: 20061010, end: 20061221
  2. NORVASC [Concomitant]
     Indication: HYPERTENSION
     Route: 065
  3. COREG [Concomitant]
     Indication: HYPERTENSION
     Route: 048
  4. COREG [Concomitant]
     Indication: CORONARY ARTERY DISEASE
     Route: 048
  5. ALTACE [Concomitant]
     Indication: HYPERTENSION
     Route: 048
  6. FLOMAX [Concomitant]
     Indication: BENIGN PROSTATIC HYPERPLASIA
     Route: 048
  7. ASPIRIN [Concomitant]
     Indication: CORONARY ARTERY DISEASE
     Route: 048
  8. AMIODARONE [Concomitant]
     Indication: ARRHYTHMIA
     Route: 048
  9. PROSCAR [Concomitant]
     Indication: BENIGN PROSTATIC HYPERPLASIA
     Route: 048
  10. ADVAIR DISKUS 100/50 [Concomitant]
     Indication: CHRONIC OBSTRUCTIVE PULMONARY DISEASE
     Route: 065
  11. COMBIVENT [Concomitant]
     Indication: CHRONIC OBSTRUCTIVE PULMONARY DISEASE
     Route: 065

REACTIONS (2)
  - HEPATIC FAILURE [None]
  - RHABDOMYOLYSIS [None]
